FAERS Safety Report 5545431-1 (Version None)
Quarter: 2007Q4

REPORT INFORMATION
  Report Type: 
  Country: None (occurrence: None)
  Receive Date: 20071206
  Receipt Date: 20071206
  Transmission Date: 20080405
  Serious: No
  Sender: FDA-Public Use
  Company Number: None

PATIENT
  Age: 4 Month
  Sex: Female

DRUGS (1)
  1. PRILOSEC [Suspect]
     Dosage: SOLUTION/DROPS

REACTIONS (4)
  - EATING DISORDER [None]
  - MEDICATION ERROR [None]
  - PAIN [None]
  - SOMNAMBULISM [None]
